FAERS Safety Report 16387738 (Version 1)
Quarter: 2019Q2

REPORT INFORMATION
  Report Type: Spontaneous
  Country: JP (occurrence: JP)
  Receive Date: 20190604
  Receipt Date: 20190604
  Transmission Date: 20190711
  Serious: Yes (Death)
  Sender: FDA-Public Use
  Company Number: JP-UCBSA-2019021532

PATIENT
  Age: 85 Year
  Sex: Male

DRUGS (1)
  1. E KEPPRA [Suspect]
     Active Substance: LEVETIRACETAM
     Indication: PRODUCT USED FOR UNKNOWN INDICATION
     Dosage: 50% 500 MILLIGRAM, 2X/DAY (BID)
     Route: 048
     Dates: start: 201904, end: 20190517

REACTIONS (4)
  - Cerebral infarction [Fatal]
  - Pneumonia [Fatal]
  - Dysphagia [Fatal]
  - Cardiac failure [Fatal]
